FAERS Safety Report 9096101 (Version 1)
Quarter: 2013Q1

REPORT INFORMATION
  Report Type: Spontaneous
  Country: DE (occurrence: DE)
  Receive Date: 20130207
  Receipt Date: 20130207
  Transmission Date: 20140127
  Serious: Yes (Other)
  Sender: FDA-Public Use
  Company Number: DE-JNJFOC-20130201771

PATIENT
  Sex: Female

DRUGS (2)
  1. REGAINE [Suspect]
     Indication: PRODUCT USED FOR UNKNOWN INDICATION
     Dosage: USED ONCE A DAY AND SOME TIMES TWICE A DAY
     Route: 061
     Dates: end: 2012
  2. REGAINE [Suspect]
     Indication: PRODUCT USED FOR UNKNOWN INDICATION
     Route: 061

REACTIONS (3)
  - Asthma [Not Recovered/Not Resolved]
  - Treatment noncompliance [Unknown]
  - Wrong drug administered [Unknown]
